FAERS Safety Report 17517778 (Version 2)
Quarter: 2020Q1

REPORT INFORMATION
  Report Type: Report from Study
  Country: ES (occurrence: ES)
  Receive Date: 20200309
  Receipt Date: 20200330
  Transmission Date: 20200409
  Serious: Yes (Hospitalization)
  Sender: FDA-Public Use
  Company Number: ES-PFIZER INC-2020098932

PATIENT
  Age: 97 Year
  Sex: Female

DRUGS (6)
  1. HYDROCHLOROTHIAZIDE. [Concomitant]
     Active Substance: HYDROCHLOROTHIAZIDE
     Dosage: 25 MG, DAILY
     Route: 048
     Dates: start: 20190613
  2. PARACETAMOL [Concomitant]
     Active Substance: ACETAMINOPHEN
     Dosage: 1.3 G, DAILY
     Route: 048
     Dates: end: 20190825
  3. SERTRALINE HCL [Suspect]
     Active Substance: SERTRALINE HYDROCHLORIDE
     Dosage: 500 MG, SINGLE
     Route: 048
     Dates: start: 20190825, end: 20190825
  4. HYDROCHLOROTHIAZIDE. [Interacting]
     Active Substance: HYDROCHLOROTHIAZIDE
     Dosage: 1 G, SINGLE
     Route: 048
     Dates: start: 20190825, end: 20190825
  5. SERC (BETAHISTINE HYDROCHLORIDE) [Interacting]
     Active Substance: BETAHISTINE HYDROCHLORIDE
     Dosage: 240 MG, SINGLE
     Route: 048
     Dates: start: 20190825, end: 20190825
  6. AMLODIPINE [Concomitant]
     Active Substance: AMLODIPINE BESYLATE
     Dosage: 5 MG, DAILY
     Route: 048
     Dates: start: 20110713

REACTIONS (7)
  - Oxygen saturation decreased [Recovered/Resolved]
  - Suicide attempt [Unknown]
  - Alcohol interaction [Recovered/Resolved]
  - Hypokalaemia [Recovered/Resolved]
  - Depressed level of consciousness [Recovered/Resolved]
  - Hypotension [Recovered/Resolved]
  - Intentional overdose [Recovered/Resolved]

NARRATIVE: CASE EVENT DATE: 20190825
